FAERS Safety Report 5275453-X (Version None)
Quarter: 2007Q1

REPORT INFORMATION
  Report Type: 
  Country: None (occurrence: None)
  Receive Date: 20070326
  Receipt Date: 20070312
  Transmission Date: 20070707
  Serious: Yes (Death, Hospitalization)
  Sender: FDA-Public Use
  Company Number: NZ-ROCHE-483606

PATIENT
  Age: 70 Year
  Sex: Female
  Weight: 60.1 kg

DRUGS (6)
  1. CAPECITABINE [Suspect]
     Route: 048
     Dates: start: 20061220, end: 20070218
  2. LEVOTHYROXINE SODIUM [Concomitant]
     Dates: start: 19950615, end: 20070223
  3. CARTIA XT [Concomitant]
     Dates: start: 20040615, end: 20070223
  4. AMITRIPTYLINE HCL [Concomitant]
     Dates: start: 20061228, end: 20070223
  5. M-ESLON [Concomitant]
     Dates: start: 20061228, end: 20070223
  6. HYDROCORTISONE [Concomitant]
     Dates: start: 20070218, end: 20070223

REACTIONS (2)
  - DIARRHOEA [None]
  - VOMITING [None]
